FAERS Safety Report 4282678-9 (Version None)
Quarter: 2004Q1

REPORT INFORMATION
  Report Type: 
  Country: None (occurrence: None)
  Receive Date: 20040130
  Receipt Date: 20030211
  Transmission Date: 20041129
  Serious: No
  Sender: FDA-Public Use
  Company Number: US-BRISTOL-MYERS SQUIBB COMPANY-12184222

PATIENT
  Age: 56 Year
  Sex: Male
  Weight: 77 kg

DRUGS (2)
  1. SERZONE [Suspect]
     Indication: DEPRESSION
     Dosage: THERAPY DISCONTINUED 3 WEEKS AGO
     Route: 048
     Dates: end: 20030101
  2. AMBIEN [Concomitant]

REACTIONS (1)
  - ABDOMINAL PAIN UPPER [None]
